FAERS Safety Report 5825036-5 (Version None)
Quarter: 2008Q3

REPORT INFORMATION
  Report Type: 
  Country: None (occurrence: None)
  Receive Date: 20080725
  Receipt Date: 20080725
  Transmission Date: 20090109
  Serious: Yes (Life-Threatening)
  Sender: FDA-Public Use
  Company Number: None

PATIENT
  Age: 15 Year
  Sex: Female
  Weight: 50.3 kg

DRUGS (2)
  1. METHADONE HCL [Suspect]
     Indication: MUSCLE SPASTICITY
     Dosage: 4 MG EVERY 8 HOURS INJ
     Dates: start: 20080612, end: 20080618
  2. METHADONE HCL [Suspect]
     Indication: PAIN
     Dosage: 4 MG EVERY 8 HOURS INJ
     Dates: start: 20080612, end: 20080618

REACTIONS (1)
  - MEDICATION ERROR [None]
